FAERS Safety Report 4530506-6 (Version None)
Quarter: 2004Q4

REPORT INFORMATION
  Report Type: 
  Country: None (occurrence: None)
  Receive Date: 20041216
  Receipt Date: 20041203
  Transmission Date: 20050328
  Serious: Yes (Hospitalization)
  Sender: FDA-Public Use
  Company Number: SEWYE271309DEC04

PATIENT
  Age: 71 Year
  Sex: Female

DRUGS (3)
  1. EFFEXOR [Suspect]
     Indication: DEPRESSION
     Dosage: 75 MG 1X PER 1 DAY; 150 MG 1X PER 1 DAY
     Route: 048
     Dates: start: 20041014, end: 20041111
  2. EFFEXOR [Suspect]
     Indication: DEPRESSION
     Dosage: 75 MG 1X PER 1 DAY; 150 MG 1X PER 1 DAY
     Route: 048
     Dates: start: 20041112
  3. TOLVON (MIANSERIN HYDROCHLORIDE, , 0) [Suspect]
     Dosage: 60 MG 1X PER 1 DAY
     Dates: start: 20041014

REACTIONS (5)
  - BURNING SENSATION [None]
  - DIARRHOEA [None]
  - HEADACHE [None]
  - HYPOAESTHESIA [None]
  - PYREXIA [None]
